FAERS Safety Report 8579675-1 (Version None)
Quarter: 2012Q3

REPORT INFORMATION
  Report Type: 
  Country: None (occurrence: None)
  Receive Date: 20120808
  Receipt Date: 20120730
  Transmission Date: 20120928
  Serious: Yes (Congenital Anomaly, Other)
  Sender: FDA-Public Use
  Company Number: GB-B.I. PHARMACEUTICALS,INC./RIDGEFIELD-2012-BP-10813BP

PATIENT
  Sex: Female

DRUGS (2)
  1. VIRAMUNE [Suspect]
     Indication: MATERNAL EXPOSURE DURING PREGNANCY
     Dosage: 400 MG
     Route: 064
     Dates: end: 20120509
  2. EPZICOM [Concomitant]
     Indication: MATERNAL EXPOSURE DURING PREGNANCY
     Route: 064
     Dates: start: 20101213, end: 20120509

REACTIONS (5)
  - CEREBRAL VENTRICLE DILATATION [None]
  - MENINGOMYELOCELE [None]
  - SPINA BIFIDA [None]
  - NEURAL TUBE DEFECT [None]
  - ARNOLD-CHIARI MALFORMATION [None]
